FAERS Safety Report 4382818-7 (Version None)
Quarter: 2004Q2

REPORT INFORMATION
  Report Type: 
  Country: None (occurrence: None)
  Receive Date: 20040617
  Receipt Date: 20040604
  Transmission Date: 20050107
  Serious: Yes (Hospitalization)
  Sender: FDA-Public Use
  Company Number: US-JNJFOC-20040502569

PATIENT
  Age: 38 Year
  Sex: Female
  Weight: 96.6162 kg

DRUGS (10)
  1. REMICADE [Suspect]
     Indication: CROHN'S DISEASE
     Dosage: 1 IN 8 WEEK, INTRAVENOUS
     Route: 042
     Dates: start: 20030501
  2. MERCAPTOPURINE [Suspect]
     Indication: CROHN'S DISEASE
     Dosage: 100 MG, 1 IN  1 DAY, ORAL
     Route: 048
  3. PREVACID [Concomitant]
  4. LIBRAX [Concomitant]
  5. FOLIC ACID [Concomitant]
  6. VITAMIN B12 [Concomitant]
  7. ALLERGY SHOTS (ALLERGY MEDICATION) [Concomitant]
  8. DEPO-PROVERA [Concomitant]
  9. VICODIN [Concomitant]
  10. AMITRIPTYLINE HCL [Concomitant]

REACTIONS (10)
  - ATELECTASIS [None]
  - CYTOMEGALOVIRUS INFECTION [None]
  - INFECTIOUS MONONUCLEOSIS [None]
  - LUMBAR PUNCTURE HEADACHE [None]
  - PARAESTHESIA [None]
  - PERICARDIAL EFFUSION [None]
  - PERICARDIAL FIBROSIS [None]
  - PETECHIAE [None]
  - PLEURAL FIBROSIS [None]
  - POSTURAL ORTHOSTATIC TACHYCARDIA SYNDROME [None]
